FAERS Safety Report 15771351 (Version 1)
Quarter: 2018Q4

REPORT INFORMATION
  Report Type: Spontaneous
  Country: US (occurrence: US)
  Receive Date: 20181207
  Receipt Date: 20181207
  Transmission Date: 20190205
  Serious: Yes (Hospitalization)
  Sender: FDA-Public Use
  Company Number: None

PATIENT
  Age: 34 Year
  Sex: Female

DRUGS (1)
  1. COSENTYX [Suspect]
     Active Substance: SECUKINUMAB
     Dates: start: 20181201

REACTIONS (4)
  - Viral infection [None]
  - Chest discomfort [None]
  - Pleural disorder [None]
  - Palpitations [None]

NARRATIVE: CASE EVENT DATE: 20181205
